FAERS Safety Report 23597292 (Version 1)
Quarter: 2024Q1

REPORT INFORMATION
  Report Type: Spontaneous
  Country: AU (occurrence: AU)
  Receive Date: 20240305
  Receipt Date: 20240305
  Transmission Date: 20240410
  Serious: Yes (Other)
  Sender: FDA-Public Use
  Company Number: AU-AstraZeneca-2024-146789

PATIENT
  Age: 38 Year
  Sex: Female

DRUGS (1)
  1. TRASTUZUMAB DERUXTECAN [Suspect]
     Active Substance: TRASTUZUMAB DERUXTECAN
     Indication: Breast cancer metastatic
     Dosage: UNK
     Route: 042
     Dates: start: 20230313

REACTIONS (4)
  - Nausea [Unknown]
  - Neutropenia [Unknown]
  - Pain [Unknown]
  - Headache [Unknown]
